FAERS Safety Report 12817139 (Version 1)
Quarter: 2016Q4

REPORT INFORMATION
  Report Type: Spontaneous
  Country: US (occurrence: US)
  Receive Date: 20161005
  Receipt Date: 20161005
  Transmission Date: 20170207
  Serious: Yes (Hospitalization, Disabling, Other)
  Sender: FDA-Public Use
  Company Number: None

PATIENT
  Age: 56 Year
  Sex: Female
  Weight: 63 kg

DRUGS (4)
  1. HARVONI [Suspect]
     Active Substance: LEDIPASVIR\SOFOSBUVIR
     Indication: HEPATITIS C
     Dosage: OTHER ORAL  1 TABLET
     Route: 048
     Dates: start: 20151221, end: 20160229
  2. TOPAMAX [Concomitant]
     Active Substance: TOPIRAMATE
  3. VITAMIN D [Concomitant]
     Active Substance: CHOLECALCIFEROL
  4. VITAMINS C [Concomitant]

REACTIONS (3)
  - Abdominal pain [None]
  - Ascites [None]
  - Swelling [None]

NARRATIVE: CASE EVENT DATE: 20160227
